FAERS Safety Report 13127453 (Version 1)
Quarter: 2017Q1

REPORT INFORMATION
  Report Type: Spontaneous
  Country: JP (occurrence: JP)
  Receive Date: 20170118
  Receipt Date: 20170118
  Transmission Date: 20170428
  Serious: Yes (Death, Hospitalization)
  Sender: FDA-Public Use
  Company Number: JP-ACTELION-A-US2017-148502

PATIENT
  Age: 3 Year
  Sex: Male

DRUGS (7)
  1. ALDACTONE A [Concomitant]
     Active Substance: SPIRONOLACTONE
  2. REVATIO [Concomitant]
     Active Substance: SILDENAFIL CITRATE
  3. OPSUMIT [Concomitant]
     Active Substance: MACITENTAN
     Indication: PULMONARY ARTERIAL HYPERTENSION
     Route: 048
  4. VENTAVIS [Suspect]
     Active Substance: ILOPROST
     Indication: PULMONARY ARTERIAL HYPERTENSION
     Dosage: UNK, 6-8 TIMES A DAY
     Route: 055
     Dates: start: 201612, end: 20170102
  5. VENTAVIS [Suspect]
     Active Substance: ILOPROST
     Dosage: 2.5 MCG, 6 TIMES A DAY
     Route: 055
     Dates: start: 20161020, end: 201612
  6. LASIX [Concomitant]
     Active Substance: FUROSEMIDE
  7. UPTRAVI [Concomitant]
     Active Substance: SELEXIPAG
     Indication: PULMONARY ARTERIAL HYPERTENSION
     Dosage: UNK
     Route: 048
     Dates: start: 20161128, end: 201612

REACTIONS (3)
  - Product use issue [Unknown]
  - Pulmonary hypertension [Fatal]
  - Loss of consciousness [Fatal]

NARRATIVE: CASE EVENT DATE: 20170101
